FAERS Safety Report 7051682-X (Version None)
Quarter: 2010Q4

REPORT INFORMATION
  Report Type: 
  Country: None (occurrence: None)
  Receive Date: 20101018
  Receipt Date: 20101018
  Transmission Date: 20110411
  Serious: Yes (Other)
  Sender: FDA-Public Use
  Company Number: None

PATIENT
  Age: 54 Year
  Sex: Female
  Weight: 70.3075 kg

DRUGS (1)
  1. RECLAST [Suspect]
     Indication: OSTEOPENIA
     Dosage: ONCE IV
     Route: 042
     Dates: start: 20101013, end: 20101013

REACTIONS (17)
  - ARTHRALGIA [None]
  - BACK PAIN [None]
  - CHEST PAIN [None]
  - CHILLS [None]
  - COUGH [None]
  - GAIT DISTURBANCE [None]
  - IMPAIRED WORK ABILITY [None]
  - INSOMNIA [None]
  - JOINT STIFFNESS [None]
  - JOINT SWELLING [None]
  - LUNG DISORDER [None]
  - OCULAR HYPERAEMIA [None]
  - PAIN [None]
  - PAIN IN EXTREMITY [None]
  - PAINFUL RESPIRATION [None]
  - PARAESTHESIA [None]
  - PYREXIA [None]
